FAERS Safety Report 5949598-2 (Version None)
Quarter: 2008Q4

REPORT INFORMATION
  Report Type: 
  Country: None (occurrence: None)
  Receive Date: 20081021
  Receipt Date: 20071019
  Transmission Date: 20090506
  Serious: Yes (Other)
  Sender: FDA-Public Use
  Company Number: HQWYE502624AUG04

PATIENT
  Age: 42 Year
  Sex: Female

DRUGS (1)
  1. PREMARIN [Suspect]
     Indication: OESTROGEN REPLACEMENT THERAPY

REACTIONS (5)
  - BACK INJURY [None]
  - BREAST CANCER [None]
  - LIMB INJURY [None]
  - NECK INJURY [None]
  - SOFT TISSUE INJURY [None]
